FAERS Safety Report 22372887 (Version 1)
Quarter: 2023Q2

REPORT INFORMATION
  Report Type: Spontaneous
  Country: US (occurrence: None)
  Receive Date: 20230525
  Receipt Date: 20230525
  Transmission Date: 20230722
  Serious: Yes (Other)
  Sender: FDA-Public Use
  Company Number: None

PATIENT
  Age: 40 Year
  Sex: Female
  Weight: 60.75 kg

DRUGS (1)
  1. METHYLPHENIDATE [Suspect]
     Active Substance: METHYLPHENIDATE
     Indication: Attention deficit hyperactivity disorder
     Dosage: OTHER QUANTITY : 1 TABLET(S);?
     Route: 048

REACTIONS (13)
  - Drug ineffective [None]
  - Suspected counterfeit product [None]
  - Product substitution issue [None]
  - Anxiety [None]
  - Headache [None]
  - Fatigue [None]
  - Memory impairment [None]
  - Decreased interest [None]
  - Disturbance in attention [None]
  - Emotional disorder [None]
  - Listless [None]
  - Feeling abnormal [None]
  - Thinking abnormal [None]

NARRATIVE: CASE EVENT DATE: 20230328
